FAERS Safety Report 7480829-6 (Version None)
Quarter: 2011Q2

REPORT INFORMATION
  Report Type: 
  Country: None (occurrence: None)
  Receive Date: 20110516
  Receipt Date: 20110510
  Transmission Date: 20111010
  Serious: Yes (Hospitalization, Other)
  Sender: FDA-Public Use
  Company Number: US-TEVA-281098USA

PATIENT
  Sex: Male

DRUGS (3)
  1. LEVOCETIRIZINE DIHYDROCHLORIDE [Concomitant]
  2. VERAMYST [Concomitant]
  3. CLARAVIS [Suspect]
     Route: 048
     Dates: end: 20110415

REACTIONS (2)
  - MOOD ALTERED [None]
  - SUICIDAL IDEATION [None]
